FAERS Safety Report 7625952-8 (Version None)
Quarter: 2011Q3

REPORT INFORMATION
  Report Type: 
  Country: None (occurrence: None)
  Receive Date: 20110721
  Receipt Date: 20110721
  Transmission Date: 20111222
  Serious: Yes (Other)
  Sender: FDA-Public Use
  Company Number: None

PATIENT
  Age: 55 Year
  Sex: Male
  Weight: 95.254 kg

DRUGS (1)
  1. CHANTIX [Suspect]
     Indication: SMOKING CESSATION THERAPY
     Dosage: 10MG
     Route: 048
     Dates: start: 20110520, end: 20110717

REACTIONS (5)
  - EUPHORIC MOOD [None]
  - AMNESIA [None]
  - FEELING ABNORMAL [None]
  - IMPRISONMENT [None]
  - LOSS OF EMPLOYMENT [None]
